FAERS Safety Report 15739451 (Version 1)
Quarter: 2018Q4

REPORT INFORMATION
  Report Type: Report from Study
  Country: CN (occurrence: CN)
  Receive Date: 20181219
  Receipt Date: 20181219
  Transmission Date: 20190205
  Serious: Yes (Hospitalization)
  Sender: FDA-Public Use
  Company Number: CN-ELI_LILLY_AND_COMPANY-CN201811000913

PATIENT
  Age: 76 Year
  Sex: Male

DRUGS (2)
  1. INSULIN, HUMAN [Suspect]
     Active Substance: INSULIN HUMAN
     Dosage: 15 U, EACH EVENING
     Route: 058
  2. INSULIN, HUMAN [Suspect]
     Active Substance: INSULIN HUMAN
     Indication: DIABETES MELLITUS
     Dosage: 30 U, EACH MORNING
     Route: 058

REACTIONS (3)
  - Cerebral infarction [Unknown]
  - Vomiting [Unknown]
  - Hypoglycaemia [Unknown]
